FAERS Safety Report 22043741 (Version 1)
Quarter: 2023Q1

REPORT INFORMATION
  Report Type: Spontaneous
  Country: IT (occurrence: IT)
  Receive Date: 20230228
  Receipt Date: 20230228
  Transmission Date: 20230418
  Serious: Yes (Other)
  Sender: FDA-Public Use
  Company Number: IT-002147023-NVSC2023IT033131

PATIENT
  Age: 50 Year
  Sex: Female

DRUGS (2)
  1. ENVARSUS XR [Suspect]
     Active Substance: TACROLIMUS
     Indication: Renal transplant
     Dosage: 1 DOSAGE FORM (LEVEL 5-7 NG /ML)
  2. MYCOPHENOLATE MOFETIL [Suspect]
     Active Substance: MYCOPHENOLATE MOFETIL
     Indication: Kidney transplant rejection
     Dosage: 250 MILLIGRAM, BID

REACTIONS (4)
  - Glomerulosclerosis [Unknown]
  - IgA nephropathy [Unknown]
  - Arteriosclerosis [Unknown]
  - Proteinuria [Unknown]
